FAERS Safety Report 19120986 (Version 1)
Quarter: 2021Q2

REPORT INFORMATION
  Report Type: Spontaneous
  Country: US (occurrence: US)
  Receive Date: 20210412
  Receipt Date: 20210412
  Transmission Date: 20210717
  Serious: Yes (Hospitalization, Other)
  Sender: FDA-Public Use
  Company Number: US-SA-2021SA119559

PATIENT
  Age: 15 Year
  Sex: Male

DRUGS (1)
  1. DUPIXENT [Suspect]
     Active Substance: DUPILUMAB
     Indication: DERMATITIS ATOPIC
     Dosage: 300 MG, QOW
     Dates: start: 20181127

REACTIONS (4)
  - Coccidioidomycosis [Not Recovered/Not Resolved]
  - Chills [Not Recovered/Not Resolved]
  - Hepatic infection fungal [Not Recovered/Not Resolved]
  - Pyrexia [Not Recovered/Not Resolved]
